FAERS Safety Report 17080582 (Version 1)
Quarter: 2019Q4

REPORT INFORMATION
  Report Type: Spontaneous
  Country: US (occurrence: US)
  Receive Date: 20191126
  Receipt Date: 20191126
  Transmission Date: 20200122
  Serious: No
  Sender: FDA-Public Use
  Company Number: None

PATIENT
  Sex: Female

DRUGS (13)
  1. RASAGILINE. [Concomitant]
     Active Substance: RASAGILINE
  2. CARB/LEVO [Concomitant]
     Active Substance: CARBIDOPA\LEVODOPA
  3. PYRIDOSTIGM [Concomitant]
  4. GOCOVRI [Concomitant]
     Active Substance: AMANTADINE
  5. FLUDROCORT [Concomitant]
  6. MIDODRINE [Concomitant]
     Active Substance: MIDODRINE
  7. ELIQUIS [Concomitant]
     Active Substance: APIXABAN
  8. GOCOVRI [Suspect]
     Active Substance: AMANTADINE
  9. LEVOTHYROXINE. [Concomitant]
     Active Substance: LEVOTHYROXINE
  10. LOSARTAN. [Concomitant]
     Active Substance: LOSARTAN
  11. NORTHERA [Suspect]
     Active Substance: DROXIDOPA
     Indication: ORTHOSTATIC HYPOTENSION
     Route: 048
     Dates: start: 20180320
  12. AMIODARONE [Concomitant]
     Active Substance: AMIODARONE
  13. OMEPRAZOLE. [Concomitant]
     Active Substance: OMEPRAZOLE

REACTIONS (2)
  - Therapy cessation [None]
  - Adverse drug reaction [None]
